FAERS Safety Report 20897074 (Version 1)
Quarter: 2022Q2

REPORT INFORMATION
  Report Type: Spontaneous
  Country: US (occurrence: None)
  Receive Date: 20220530
  Receipt Date: 20220530
  Transmission Date: 20220721
  Serious: Yes (Other)
  Sender: FDA-Public Use
  Company Number: None

PATIENT

DRUGS (1)
  1. NEXPLANON [Suspect]
     Active Substance: ETONOGESTREL

REACTIONS (4)
  - Mood swings [None]
  - Suicidal ideation [None]
  - Oligomenorrhoea [None]
  - Tendon pain [None]

NARRATIVE: CASE EVENT DATE: 20220529
